FAERS Safety Report 10145305 (Version 1)
Quarter: 2014Q2

REPORT INFORMATION
  Report Type: Spontaneous
  Country: US (occurrence: US)
  Receive Date: 20140501
  Receipt Date: 20140501
  Transmission Date: 20141212
  Serious: No
  Sender: FDA-Public Use
  Company Number: US-BIOGENIDEC-2014BI037580

PATIENT
  Age: 63 Year
  Sex: Female

DRUGS (7)
  1. TECFIDERA [Suspect]
     Indication: MULTIPLE SCLEROSIS
     Route: 048
  2. SIMVASTATIN [Concomitant]
  3. LLSINOPRIL [Concomitant]
  4. CALCIUM WITH VITAMIN D [Concomitant]
  5. VITAMIN B 12 [Concomitant]
  6. VITAMIN C [Concomitant]
  7. FLAX OIL [Concomitant]

REACTIONS (1)
  - Peroneal nerve palsy [Unknown]
